FAERS Safety Report 5859057-3 (Version None)
Quarter: 2008Q3

REPORT INFORMATION
  Report Type: 
  Country: None (occurrence: None)
  Receive Date: 20080825
  Receipt Date: 20080808
  Transmission Date: 20090109
  Serious: Yes (Hospitalization)
  Sender: FDA-Public Use
  Company Number: 8036087

PATIENT
  Age: 7 Year
  Sex: Female

DRUGS (5)
  1. PREDNISOLONE [Suspect]
     Indication: EVANS SYNDROME
     Dosage: A FEW YEARS
  2. PREDNISOLONE [Suspect]
     Indication: EVANS SYNDROME
  3. PREDNISOLONE [Suspect]
     Indication: EVANS SYNDROME
  4. IMMUNE GLOBULIN INTRAVENOUS (HUMAN) [Concomitant]
  5. RITUXIMAB [Concomitant]

REACTIONS (11)
  - ANOREXIA [None]
  - CARDIAC MURMUR [None]
  - CARDIOMEGALY [None]
  - COUGH [None]
  - FATIGUE [None]
  - HAEMORRHAGE [None]
  - HERPES ZOSTER [None]
  - PLEURAL EFFUSION [None]
  - PULMONARY HYPERTENSION [None]
  - PULMONARY OEDEMA [None]
  - TRICUSPID VALVE INCOMPETENCE [None]
